FAERS Safety Report 4552916-3 (Version None)
Quarter: 2005Q1

REPORT INFORMATION
  Report Type: 
  Country: None (occurrence: None)
  Receive Date: 20050113
  Receipt Date: 20050106
  Transmission Date: 20050727
  Serious: Yes (Other)
  Sender: FDA-Public Use
  Company Number: 200416245BCC

PATIENT
  Age: 41 Year
  Sex: Male
  Weight: 74.8435 kg

DRUGS (5)
  1. ALEVE [Suspect]
     Indication: PAIN
     Dosage: 440-660 MG, ORAL
     Route: 048
  2. EQUATE [Concomitant]
  3. LEVOXYL [Concomitant]
  4. NAPROXEN [Concomitant]
  5. COMBIVENT [Concomitant]

REACTIONS (2)
  - ASTHMA [None]
  - HAEMOPTYSIS [None]
